FAERS Safety Report 5021132-3 (Version None)
Quarter: 2006Q2

REPORT INFORMATION
  Report Type: 
  Country: None (occurrence: None)
  Receive Date: 20060608
  Receipt Date: 20060606
  Transmission Date: 20061013
  Serious: Yes (Other)
  Sender: FDA-Public Use
  Company Number: US-GLAXOSMITHKLINE-A0608026A

PATIENT
  Age: 57 Year
  Sex: Male

DRUGS (5)
  1. CITRUCEL CAPLETS [Suspect]
     Route: 048
     Dates: start: 20060301, end: 20060401
  2. CITRUCEL [Suspect]
     Dosage: 2SP PER DAY
     Route: 048
     Dates: start: 20030801
  3. LOMOTIL [Concomitant]
  4. ASPIRIN [Concomitant]
  5. BEANO [Concomitant]

REACTIONS (2)
  - DIARRHOEA [None]
  - INTESTINAL OBSTRUCTION [None]
